FAERS Safety Report 17489208 (Version 1)
Quarter: 2020Q1

REPORT INFORMATION
  Report Type: Spontaneous
  Country: US (occurrence: US)
  Receive Date: 20200221
  Receipt Date: 20200221
  Transmission Date: 20200409
  Serious: No
  Sender: FDA-Public Use
  Company Number: None

PATIENT
  Age: 39 Year
  Sex: Female
  Weight: 71 kg

DRUGS (1)
  1. GLATIRAMER ACETATE 40MG/ML SYRINGE GENERIC [Suspect]
     Active Substance: GLATIRAMER ACETATE
     Indication: MULTIPLE SCLEROSIS
     Route: 058
     Dates: end: 20200216

REACTIONS (6)
  - Tachycardia [None]
  - Lip swelling [None]
  - Swelling face [None]
  - Injection site mass [None]
  - Feeling hot [None]
  - Throat tightness [None]

NARRATIVE: CASE EVENT DATE: 20200216
